FAERS Safety Report 8905242 (Version 4)
Quarter: 2015Q3

REPORT INFORMATION
  Report Type: Spontaneous
  Country: US (occurrence: US)
  Receive Date: 20121109
  Receipt Date: 20150812
  Transmission Date: 20151125
  Serious: Yes (Hospitalization)
  Sender: FDA-Public Use
  Company Number: US-GILEAD-2012-0061610

PATIENT
  Age: 52 Year
  Sex: Female

DRUGS (2)
  1. REVATIO [Concomitant]
     Active Substance: SILDENAFIL CITRATE
  2. LETAIRIS [Suspect]
     Active Substance: AMBRISENTAN
     Indication: PULMONARY ARTERIAL HYPERTENSION
     Dosage: 10 MG, UNK
     Route: 048
     Dates: start: 20120730

REACTIONS (5)
  - Cardiac disorder [Not Recovered/Not Resolved]
  - Fluid retention [Unknown]
  - Blood glucose decreased [Unknown]
  - Cardiac failure congestive [Unknown]
  - Weight increased [Unknown]
